FAERS Safety Report 4578823-8 (Version None)
Quarter: 2005Q1

REPORT INFORMATION
  Report Type: 
  Country: None (occurrence: None)
  Receive Date: 20050211
  Receipt Date: 20050203
  Transmission Date: 20050727
  Serious: Yes (Death)
  Sender: FDA-Public Use
  Company Number: FR-BRISTOL-MYERS SQUIBB COMPANY-12850160

PATIENT

DRUGS (1)
  1. TAXOL [Suspect]
     Route: 042

REACTIONS (1)
  - CEREBROVASCULAR ACCIDENT [None]
